FAERS Safety Report 12059512 (Version 1)
Quarter: 2016Q1

REPORT INFORMATION
  Report Type: Spontaneous
  Country: CA (occurrence: None)
  Receive Date: 20160209
  Receipt Date: 20160209
  Transmission Date: 20160526
  Serious: No
  Sender: FDA-Public Use
  Company Number: None

PATIENT
  Age: 26 Year
  Sex: Female
  Weight: 77.11 kg

DRUGS (13)
  1. LORAZEPAM. [Concomitant]
     Active Substance: LORAZEPAM
  2. SEASONIQUE [Concomitant]
     Active Substance: ETHINYL ESTRADIOL\LEVONORGESTREL
  3. CALCIUM [Concomitant]
     Active Substance: CALCIUM
  4. APO-BACLOFEN [Suspect]
     Active Substance: BACLOFEN
     Indication: NECK PAIN
     Route: 048
     Dates: start: 20160128, end: 20160208
  5. CETIRIZINE [Concomitant]
     Active Substance: CETIRIZINE HYDROCHLORIDE
  6. APO-BACLOFEN [Suspect]
     Active Substance: BACLOFEN
     Indication: MUSCULOSKELETAL PAIN
     Route: 048
     Dates: start: 20160128, end: 20160208
  7. VITAMIN B [Concomitant]
     Active Substance: VITAMIN B
  8. VITAMIN D [Concomitant]
     Active Substance: CHOLECALCIFEROL
  9. ZOPICLONE [Concomitant]
     Active Substance: ZOPICLONE
  10. OMEGA 3S [Concomitant]
  11. MAGNESIUM [Concomitant]
     Active Substance: MAGNESIUM
  12. APO-BACLOFEN [Suspect]
     Active Substance: BACLOFEN
     Indication: MUSCULOSKELETAL STIFFNESS
     Route: 048
     Dates: start: 20160128, end: 20160208
  13. WELLBUTRIN [Concomitant]
     Active Substance: BUPROPION HYDROCHLORIDE

REACTIONS (2)
  - Female orgasmic disorder [None]
  - Pollakiuria [None]

NARRATIVE: CASE EVENT DATE: 20160131
